FAERS Safety Report 5860608-3 (Version None)
Quarter: 2008Q3

REPORT INFORMATION
  Report Type: 
  Country: None (occurrence: None)
  Receive Date: 20080827
  Receipt Date: 20070913
  Transmission Date: 20090109
  Serious: No
  Sender: FDA-Public Use
  Company Number: US-ABBOTT-07P-163-0417240-00

PATIENT
  Sex: Male

DRUGS (7)
  1. NIASPAN [Suspect]
     Indication: BLOOD CHOLESTEROL
     Route: 048
     Dates: start: 20040101
  2. NIASPAN [Suspect]
     Dates: start: 20060101, end: 20060101
  3. NIASPAN [Suspect]
     Dates: start: 20060101, end: 20060101
  4. NIASPAN [Suspect]
     Dates: start: 20060101, end: 20060101
  5. NIASPAN [Suspect]
     Dates: start: 20070101
  6. QUINAPRIL [Concomitant]
     Indication: BLOOD PRESSURE
     Route: 048
  7. LOVASTATIN [Concomitant]
     Indication: DRUG USE FOR UNKNOWN INDICATION
     Dates: start: 20060101

REACTIONS (3)
  - FLUSHING [None]
  - PRURITUS [None]
  - SWELLING [None]
